FAERS Safety Report 14170304 (Version 2)
Quarter: 2018Q1

REPORT INFORMATION
  Report Type: Spontaneous
  Country: US (occurrence: US)
  Receive Date: 20171108
  Receipt Date: 20180129
  Transmission Date: 20180508
  Serious: Yes (Hospitalization, Disabling, Other)
  Sender: FDA-Public Use
  Company Number: US-TEVA-823617USA

PATIENT
  Age: 35 Year
  Sex: Female
  Weight: 75.82 kg

DRUGS (4)
  1. D-MANNOSE [Concomitant]
     Route: 048
  2. PARAGARD T 380A [Suspect]
     Active Substance: COPPER
     Indication: CONTRACEPTIVE IMPLANT
     Route: 015
     Dates: start: 200701
  3. VITAMIN C [Concomitant]
     Active Substance: ASCORBIC ACID
     Route: 048
  4. VITAMIN D [Concomitant]
     Active Substance: CHOLECALCIFEROL
     Route: 048

REACTIONS (29)
  - Device dislocation [Unknown]
  - Device breakage [Unknown]
  - Foreign body reaction [Unknown]
  - Anxiety [Unknown]
  - Musculoskeletal pain [Unknown]
  - Pelvic pain [Unknown]
  - Menopausal symptoms [Unknown]
  - Functional gastrointestinal disorder [Unknown]
  - Ovarian cyst ruptured [Unknown]
  - Embedded device [Unknown]
  - Sexual dysfunction [Unknown]
  - Neck pain [Unknown]
  - Alopecia [Unknown]
  - Pain [Unknown]
  - Dysuria [Unknown]
  - Dehydration [Unknown]
  - Haemorrhage [Unknown]
  - Depression [Unknown]
  - Injury [Unknown]
  - Urinary tract infection [Unknown]
  - Nausea [Unknown]
  - Back pain [Unknown]
  - Insomnia [Unknown]
  - Fatigue [Unknown]
  - Vulvovaginal candidiasis [Unknown]
  - Bladder dysfunction [Unknown]
  - Vulval disorder [Unknown]
  - Loss of personal independence in daily activities [Unknown]
  - Nephrolithiasis [Unknown]

NARRATIVE: CASE EVENT DATE: 201512
